FAERS Safety Report 8530494 (Version 4)
Quarter: 2012Q4

REPORT INFORMATION
  Report Type: 
  Country: HR (occurrence: HR)
  Receive Date: 20120425
  Receipt Date: 20121002
  Transmission Date: 20130627
  Serious: Yes (Hospitalization)
  Sender: FDA-Public Use
  Company Number: HR-ELI_LILLY_AND_COMPANY-HR201204004412

PATIENT
  Sex: Male

DRUGS (6)
  1. ZYPADHERA [Suspect]
     Indication: SCHIZOPHRENIA
     Dosage: 300 mg, 2/M
     Route: 030
     Dates: start: 201202
  2. ZYPREXA [Suspect]
     Indication: SCHIZOPHRENIA, PARANOID TYPE
     Dosage: 30 mg, qd
     Route: 048
  3. ZYPREXA [Suspect]
     Dosage: 10 mg, other
     Route: 048
  4. DIAZEPAM [Concomitant]
     Dosage: 30 mg, UNK
  5. ZOLPIDEM [Concomitant]
     Dosage: 10 mg, UNK
  6. PROMAZIN [Concomitant]

REACTIONS (2)
  - Schizophrenia [Unknown]
  - Prescribed overdose [Unknown]
